FAERS Safety Report 4844169-3 (Version None)
Quarter: 2005Q4

REPORT INFORMATION
  Report Type: 
  Country: None (occurrence: None)
  Receive Date: 20051202
  Receipt Date: 20051005
  Transmission Date: 20060501
  Serious: Yes (Other)
  Sender: FDA-Public Use
  Company Number: PHFR2005GB03291

PATIENT
  Age: 34 Year
  Sex: Male

DRUGS (4)
  1. TEGRETOL [Suspect]
     Indication: MANIA
     Dosage: 100 MG, BID
     Route: 048
     Dates: start: 20040525
  2. LUSTRAL [Concomitant]
     Indication: DEPRESSION
     Dosage: 50 MG, BID
     Route: 065
     Dates: start: 20030509
  3. QVAR [Concomitant]
     Indication: ASTHMA
     Dosage: UNK, UNK
  4. BRICANYL [Concomitant]
     Indication: ASTHMA
     Dosage: UNK, UNK

REACTIONS (2)
  - FOOD INTERACTION [None]
  - HEADACHE [None]
